FAERS Safety Report 7446364-6 (Version None)
Quarter: 2011Q2

REPORT INFORMATION
  Report Type: 
  Country: None (occurrence: None)
  Receive Date: 20110429
  Receipt Date: 20101001
  Transmission Date: 20111010
  Serious: No
  Sender: FDA-Public Use
  Company Number: US-ASTRAZENECA-2010SE42343

PATIENT
  Sex: Female

DRUGS (2)
  1. PRILOSEC [Suspect]
     Route: 048
  2. NEXIUM [Suspect]
     Route: 048

REACTIONS (9)
  - LARYNX IRRITATION [None]
  - DRUG INEFFECTIVE [None]
  - DIZZINESS [None]
  - SOMNOLENCE [None]
  - COUGH [None]
  - HEADACHE [None]
  - DRY MOUTH [None]
  - ASTHENIA [None]
  - DRUG DOSE OMISSION [None]
